FAERS Safety Report 17059210 (Version 2)
Quarter: 2019Q4

REPORT INFORMATION
  Report Type: Spontaneous
  Country: US (occurrence: US)
  Receive Date: 20191121
  Receipt Date: 20191127
  Transmission Date: 20200122
  Serious: No
  Sender: FDA-Public Use
  Company Number: US-PFIZER INC-2019504783

PATIENT
  Age: 65 Year
  Sex: Female
  Weight: 81.18 kg

DRUGS (2)
  1. ALPRAZOLAM. [Suspect]
     Active Substance: ALPRAZOLAM
     Dosage: 3.75 MG, UNK
  2. ALPRAZOLAM. [Suspect]
     Active Substance: ALPRAZOLAM
     Indication: ANXIETY
     Dosage: 4 MG, DAILY
     Route: 048

REACTIONS (7)
  - Product complaint [Unknown]
  - Balance disorder [Unknown]
  - Drug ineffective [Unknown]
  - Confusional state [Unknown]
  - Dizziness [Unknown]
  - Diarrhoea [Unknown]
  - Lethargy [Unknown]
